FAERS Safety Report 24199519 (Version 11)
Quarter: 2025Q1

REPORT INFORMATION
  Report Type: Spontaneous
  Country: US (occurrence: US)
  Receive Date: 20240812
  Receipt Date: 20250226
  Transmission Date: 20250409
  Serious: No
  Sender: BRISTOL-MYERS SQUIBB COMPANY
  Company Number: US-BRISTOL-MYERS SQUIBB COMPANY-2024-126475

PATIENT
  Age: 80 Year
  Sex: Female

DRUGS (6)
  1. LENALIDOMIDE [Suspect]
     Active Substance: LENALIDOMIDE
     Indication: Myelodysplastic syndrome
     Route: 048
  2. LENALIDOMIDE [Suspect]
     Active Substance: LENALIDOMIDE
     Route: 048
  3. LENALIDOMIDE [Suspect]
     Active Substance: LENALIDOMIDE
     Route: 048
  4. LENALIDOMIDE [Suspect]
     Active Substance: LENALIDOMIDE
     Route: 048
  5. LENALIDOMIDE [Suspect]
     Active Substance: LENALIDOMIDE
     Route: 048
  6. LENALIDOMIDE [Suspect]
     Active Substance: LENALIDOMIDE
     Route: 048

REACTIONS (14)
  - Pruritus [Recovering/Resolving]
  - Urticaria [Not Recovered/Not Resolved]
  - Swelling [Not Recovered/Not Resolved]
  - Cystitis [Not Recovered/Not Resolved]
  - Off label use [Unknown]
  - White blood cell count decreased [Recovered/Resolved]
  - White blood cell count increased [Not Recovered/Not Resolved]
  - Upper-airway cough syndrome [Unknown]
  - Product distribution issue [Unknown]
  - Therapy interrupted [Unknown]
  - Blood pressure diastolic decreased [Recovered/Resolved]
  - Malaise [Recovered/Resolved]
  - Balance disorder [Recovered/Resolved]
  - Peripheral swelling [Not Recovered/Not Resolved]
